FAERS Safety Report 10160694 (Version 4)
Quarter: 2014Q2

REPORT INFORMATION
  Report Type: Spontaneous
  Country: HU (occurrence: HU)
  Receive Date: 20140508
  Receipt Date: 20140626
  Transmission Date: 20141212
  Serious: Yes (Other)
  Sender: FDA-Public Use
  Company Number: HU-BAYER-2014-066634

PATIENT
  Sex: Male

DRUGS (4)
  1. STIVARGA [Suspect]
     Dosage: UNK
     Route: 048
     Dates: end: 201405
  2. STIVARGA [Suspect]
     Dosage: UNK
     Route: 048
     Dates: start: 201405
  3. STIVARGA [Suspect]
     Dosage: UNK
     Route: 048
     Dates: start: 201406, end: 201406
  4. CLEXANE [Concomitant]
     Indication: PROPHYLAXIS
     Dosage: 0.6 ML DAILY (QD)
     Dates: start: 201405

REACTIONS (2)
  - Atrial fibrillation [Not Recovered/Not Resolved]
  - Cardiac failure [Not Recovered/Not Resolved]
